FAERS Safety Report 14498636 (Version 6)
Quarter: 2018Q2

REPORT INFORMATION
  Report Type: Spontaneous
  Country: US (occurrence: US)
  Receive Date: 20180207
  Receipt Date: 20180412
  Transmission Date: 20180711
  Serious: Yes (Other)
  Sender: FDA-Public Use
  Company Number: US-PFIZER INC-2018047766

PATIENT
  Age: 69 Year
  Sex: Female
  Weight: 58.51 kg

DRUGS (5)
  1. FORTEO [Concomitant]
     Active Substance: TERIPARATIDE
     Indication: BONE LOSS
     Dosage: UNK
  2. FORTEO [Concomitant]
     Active Substance: TERIPARATIDE
     Indication: JAW DISORDER
  3. LATANOPROST. [Suspect]
     Active Substance: LATANOPROST
     Dosage: 6 GTT, 1X/DAY
  4. LATANOPROST. [Suspect]
     Active Substance: LATANOPROST
     Indication: INTRAOCULAR PRESSURE INCREASED
     Dosage: 1 GTT, 1X/DAY
     Dates: start: 2014
  5. LATANOPROST. [Suspect]
     Active Substance: LATANOPROST
     Dosage: UNK

REACTIONS (4)
  - Cataract [Recovering/Resolving]
  - Product container issue [Unknown]
  - Accidental overdose [Unknown]
  - Drug ineffective [Not Recovered/Not Resolved]

NARRATIVE: CASE EVENT DATE: 2015
